FAERS Safety Report 7353197-8 (Version None)
Quarter: 2011Q1

REPORT INFORMATION
  Report Type: 
  Country: None (occurrence: None)
  Receive Date: 20110315
  Receipt Date: 20110308
  Transmission Date: 20110831
  Serious: Yes (Other)
  Sender: FDA-Public Use
  Company Number: AU-B.I. PHARMACEUTICALS,INC./RIDGEFIELD-2011-AU-00148AU

PATIENT
  Sex: Male

DRUGS (2)
  1. ASPIRIN [Concomitant]
  2. ASPIRIN AND DIPYRIDAMOLE [Suspect]
     Indication: CEREBROVASCULAR ACCIDENT
     Route: 048

REACTIONS (2)
  - THROMBOCYTOPENIA [None]
  - NON-HODGKIN'S LYMPHOMA [None]
